FAERS Safety Report 11385476 (Version 2)
Quarter: 2015Q4

REPORT INFORMATION
  Report Type: Spontaneous
  Country: US (occurrence: US)
  Receive Date: 20150815
  Receipt Date: 20151022
  Transmission Date: 20160304
  Serious: Yes (Hospitalization)
  Sender: FDA-Public Use
  Company Number: PHHY2015US097516

PATIENT
  Age: 54 Year
  Sex: Female

DRUGS (5)
  1. IMITREX [Concomitant]
     Active Substance: SUMATRIPTAN\SUMATRIPTAN SUCCINATE
     Indication: MIGRAINE
     Dosage: UNK UNK, PRN, NO MORE THAN 2 DAILY
     Route: 065
  2. TOPAMAX [Concomitant]
     Active Substance: TOPIRAMATE
     Indication: MIGRAINE
     Route: 065
  3. CAMBIA [Suspect]
     Active Substance: DICLOFENAC POTASSIUM
     Indication: MIGRAINE
     Dosage: 50 MG, PRN
     Route: 048
     Dates: start: 201402
  4. FIORICET [Concomitant]
     Active Substance: ACETAMINOPHEN\BUTALBITAL\CAFFEINE
     Indication: MIGRAINE
     Dosage: 325 MG, UNK
     Route: 048
  5. TRAMADOL. [Concomitant]
     Active Substance: TRAMADOL
     Indication: MIGRAINE
     Dosage: 50 MG, TID
     Route: 048

REACTIONS (8)
  - Headache [Unknown]
  - Long QT syndrome [Unknown]
  - Myocardial infarction [Recovered/Resolved]
  - Breast cancer [Unknown]
  - Diplopia [Unknown]
  - Weight decreased [Unknown]
  - Blindness [Unknown]
  - Memory impairment [Unknown]

NARRATIVE: CASE EVENT DATE: 201505
